FAERS Safety Report 5385593-2 (Version None)
Quarter: 2007Q3

REPORT INFORMATION
  Report Type: 
  Country: None (occurrence: None)
  Receive Date: 20070712
  Receipt Date: 20070704
  Transmission Date: 20080115
  Serious: Yes (Other)
  Sender: FDA-Public Use
  Company Number: AU-SANOFI-SYNTHELABO-A01200707258

PATIENT
  Age: 34 Year
  Sex: Female

DRUGS (2)
  1. EFFEXOR XR [Concomitant]
     Indication: DRUG USE FOR UNKNOWN INDICATION
     Dosage: 150 MG
     Route: 065
  2. ZOLPIDEM TARTRATE [Suspect]
     Indication: SLEEP DISORDER
     Dosage: 10 MG
     Route: 048
     Dates: start: 20040615, end: 20061215

REACTIONS (7)
  - ABNORMAL SLEEP-RELATED EVENT [None]
  - AMNESIA [None]
  - HALLUCINATION, AUDITORY [None]
  - LACERATION [None]
  - SELF MUTILATION [None]
  - SOMATIC HALLUCINATION [None]
  - SOMNAMBULISM [None]
